FAERS Safety Report 6758997-0 (Version None)
Quarter: 2010Q2

REPORT INFORMATION
  Report Type: 
  Country: None (occurrence: None)
  Receive Date: 20100602
  Receipt Date: 20100519
  Transmission Date: 20101027
  Serious: Yes (Other)
  Sender: FDA-Public Use
  Company Number: TPA2010A03220

PATIENT
  Age: 78 Year
  Sex: Male

DRUGS (2)
  1. DEXILANT (DEXLANSOPRAZOLE) [Suspect]
     Indication: EROSIVE DUODENITIS
  2. VYTORIN [Concomitant]

REACTIONS (2)
  - ALANINE AMINOTRANSFERASE INCREASED [None]
  - ASPARTATE AMINOTRANSFERASE INCREASED [None]
